FAERS Safety Report 6171776-0 (Version None)
Quarter: 2009Q2

REPORT INFORMATION
  Report Type: 
  Country: None (occurrence: None)
  Receive Date: 20090424
  Receipt Date: 20090112
  Transmission Date: 20091009
  Serious: No
  Sender: FDA-Public Use
  Company Number: SPV1-2009-00048

PATIENT
  Age: 53 Year
  Sex: Female
  Weight: 48.1 kg

DRUGS (4)
  1. VYVANSE [Suspect]
     Indication: ATTENTION DEFICIT/HYPERACTIVITY DISORDER
     Dosage: 30 MG, 1X/DAY:QD, ORAL
     Route: 048
     Dates: start: 20090107, end: 20090110
  2. AMBIEN [Concomitant]
  3. MELATONIN (MELATONIN) [Concomitant]
  4. LEXAPRO [Concomitant]

REACTIONS (2)
  - DEPRESSION [None]
  - ENERGY INCREASED [None]
